FAERS Safety Report 12063838 (Version 1)
Quarter: 2016Q1

REPORT INFORMATION
  Report Type: Spontaneous
  Country: US (occurrence: US)
  Receive Date: 20160210
  Receipt Date: 20160210
  Transmission Date: 20160526
  Serious: No
  Sender: FDA-Public Use
  Company Number: US-ALLERGAN-1502810US

PATIENT
  Age: 58 Year
  Sex: Female
  Weight: 56.69 kg

DRUGS (6)
  1. TRAMADOL. [Concomitant]
     Active Substance: TRAMADOL
     Dosage: 50 MG, PRN
     Route: 048
  2. XANAFLEX [Concomitant]
     Dosage: 4 MG, PRN
     Route: 048
  3. EFFEXOR [Concomitant]
     Active Substance: VENLAFAXINE HYDROCHLORIDE
     Indication: DEPRESSION
     Dosage: 37.6 MG, UNK
     Route: 048
     Dates: start: 201501
  4. TOPAMAX [Concomitant]
     Active Substance: TOPIRAMATE
     Indication: MIGRAINE
     Dosage: 100 MG, TID
     Route: 048
     Dates: start: 201501
  5. BOTOX [Suspect]
     Active Substance: ONABOTULINUMTOXINA
     Indication: MIGRAINE
     Dosage: 155 UNITS, SINGLE
     Route: 030
     Dates: start: 20150211, end: 20150211
  6. PREMARIN [Concomitant]
     Active Substance: ESTROGENS, CONJUGATED
     Dosage: 0.9 MG, QD

REACTIONS (4)
  - Nodule [Recovered/Resolved]
  - Erythema [Not Recovered/Not Resolved]
  - Headache [Not Recovered/Not Resolved]
  - Swelling face [Recovered/Resolved]

NARRATIVE: CASE EVENT DATE: 20150213
